FAERS Safety Report 11006058 (Version 2)
Quarter: 2016Q2

REPORT INFORMATION
  Report Type: Spontaneous
  Country: DE (occurrence: DE)
  Receive Date: 20150409
  Receipt Date: 20160413
  Transmission Date: 20160815
  Serious: Yes (Hospitalization, Disabling, Other)
  Sender: FDA-Public Use
  Company Number: PHHY2015DE028232

PATIENT
  Age: 51 Year
  Sex: Male
  Weight: 100 kg

DRUGS (1)
  1. EXFORGE HCT [Suspect]
     Active Substance: AMLODIPINE BESYLATE\HYDROCHLOROTHIAZIDE\VALSARTAN
     Indication: HYPERTENSION
     Dosage: 1 DF  (10 MG AMLO, 160 MG VALS, 12.5 MG HCTZ), QD
     Route: 065
     Dates: start: 201301, end: 201504

REACTIONS (3)
  - Visual acuity reduced [Unknown]
  - Retinal detachment [Not Recovered/Not Resolved]
  - Intraocular pressure increased [Recovered/Resolved]

NARRATIVE: CASE EVENT DATE: 201302
